FAERS Safety Report 6578946-8 (Version None)
Quarter: 2010Q1

REPORT INFORMATION
  Report Type: 
  Country: None (occurrence: None)
  Receive Date: 20100212
  Receipt Date: 20100202
  Transmission Date: 20100710
  Serious: Yes (Other)
  Sender: FDA-Public Use
  Company Number: FR-BAYER-200934806GPV

PATIENT
  Age: 48 Year
  Sex: Female

DRUGS (4)
  1. MIRENA [Suspect]
     Indication: MENORRHAGIA
     Route: 015
     Dates: start: 20070401, end: 20070730
  2. LEVOTHYROXINE SODIUM [Concomitant]
     Indication: THYROID NEOPLASM
  3. EXACYL [Concomitant]
     Indication: GENITAL HAEMORRHAGE
     Dosage: AS USED: 4 DF
     Route: 048
     Dates: start: 20050101, end: 20070101
  4. LUTENYL [Concomitant]
     Indication: GENITAL HAEMORRHAGE
     Dosage: AS USED: 1 DF
     Route: 048
     Dates: start: 20070801, end: 20071001

REACTIONS (5)
  - ABDOMINAL DISTENSION [None]
  - ENDOMETRIAL CANCER [None]
  - INCREASED APPETITE [None]
  - LOSS OF LIBIDO [None]
  - METRORRHAGIA [None]
